FAERS Safety Report 24210118 (Version 1)
Quarter: 2024Q3

REPORT INFORMATION
  Report Type: Spontaneous
  Country: US (occurrence: None)
  Receive Date: 20240813
  Receipt Date: 20240813
  Transmission Date: 20241016
  Serious: Yes (unspecified)
  Sender: Public
  Company Number: None

PATIENT
  Age: 20 Year
  Sex: Female
  Weight: 76.4 kg

DRUGS (2)
  1. LINEZOLID [Suspect]
     Active Substance: LINEZOLID
     Dosage: 600 MG Q 12 HOURS INTRAVENOUS
     Route: 042
     Dates: start: 20240312, end: 20240525
  2. METRONIDAZOLE [Suspect]
     Active Substance: METRONIDAZOLE

REACTIONS (7)
  - Neutropenia [None]
  - Haematological infection [None]
  - Klebsiella infection [None]
  - Staphylococcal infection [None]
  - Paraesthesia [None]
  - Neuralgia [None]
  - Peripheral sensory neuropathy [None]

NARRATIVE: CASE EVENT DATE: 20240614
